FAERS Safety Report 24728229 (Version 2)
Quarter: 2024Q4

REPORT INFORMATION
  Report Type: Spontaneous
  Country: DE (occurrence: DE)
  Receive Date: 20241212
  Receipt Date: 20241216
  Transmission Date: 20250115
  Serious: Yes (Other)
  Sender: NOVARTIS
  Company Number: DE-ITM MEDICAL ISOTOPES GMBH-ITMDE2024000520

PATIENT
  Sex: Male

DRUGS (3)
  1. LUTETIUM CHLORIDE LU-177 [Suspect]
     Active Substance: LUTETIUM CHLORIDE LU-177
     Indication: Radioisotope therapy
     Dosage: CYCLE #1 AT LEAST ONE CYCLE, DOSE RANGED FROM 2.4 TO 12.2 GBQ PER CYCLE) OF [???LU]LU-PSMA-617 RLT T
     Route: 065
  2. LUTETIUM LU-177 VIPIVOTIDE TETRAXETAN [Suspect]
     Active Substance: LUTETIUM LU-177 VIPIVOTIDE TETRAXETAN
     Indication: Hormone-refractory prostate cancer
     Dosage: CYCLE #1 AT LEAST ONE CYCLE, DOSE RANGED FROM 2.4 TO 12.2 GBQ PER CYCLE) OF [???LU]LU-PSMA-617 RLT T
     Route: 065
  3. SODIUM CHLORIDE [Concomitant]
     Active Substance: SODIUM CHLORIDE
     Indication: Product used for unknown indication
     Dosage: PRIOR TO TREATMENT INFUSION, 30 MINUTES BEFORE THE INFUSION OVER A 1-HOUR PERIOD VIA AN INFUSION LIN
     Route: 042

REACTIONS (1)
  - Glomerular filtration rate decreased [Unknown]
